FAERS Safety Report 5371031-2 (Version None)
Quarter: 2007Q2

REPORT INFORMATION
  Report Type: 
  Country: None (occurrence: None)
  Receive Date: 20070626
  Receipt Date: 20070614
  Transmission Date: 20071010
  Serious: Yes (Other)
  Sender: FDA-Public Use
  Company Number: SE-PFIZER INC-2007047912

PATIENT
  Age: 20 Year
  Sex: Male

DRUGS (3)
  1. ZOLOFT [Suspect]
     Indication: PANIC DISORDER
     Route: 048
  2. ZOLOFT [Interacting]
     Indication: ANXIETY
  3. SANDIMMUNE [Interacting]
     Indication: HEART TRANSPLANT

REACTIONS (4)
  - DEPENDENCE [None]
  - DRUG INTERACTION [None]
  - IMMUNOSUPPRESSANT DRUG LEVEL DECREASED [None]
  - TREMOR [None]
